FAERS Safety Report 16001321 (Version 1)
Quarter: 2019Q1

REPORT INFORMATION
  Report Type: Spontaneous
  Country: US (occurrence: US)
  Receive Date: 20190225
  Receipt Date: 20190225
  Transmission Date: 20190418
  Serious: Yes (Hospitalization)
  Sender: FDA-Public Use
  Company Number: US-ALLERGAN-1907193US

PATIENT
  Age: 62 Year
  Sex: Female

DRUGS (1)
  1. MESALAZINE UNK [Suspect]
     Active Substance: MESALAMINE
     Indication: PRODUCT USED FOR UNKNOWN INDICATION
     Route: 048

REACTIONS (6)
  - Nausea [Unknown]
  - Aortic aneurysm [Unknown]
  - Abdominal pain upper [Recovering/Resolving]
  - Aortitis [Unknown]
  - Crohn^s disease [Unknown]
  - Diarrhoea [Unknown]
